FAERS Safety Report 19001770 (Version 1)
Quarter: 2021Q1

REPORT INFORMATION
  Report Type: Report from Study
  Country: US (occurrence: US)
  Receive Date: 20210312
  Receipt Date: 20210312
  Transmission Date: 20210420
  Serious: No
  Sender: FDA-Public Use
  Company Number: NVSC2021US049483

PATIENT
  Age: 50 Year
  Sex: Female

DRUGS (1)
  1. ENTRESTO [Suspect]
     Active Substance: SACUBITRIL\VALSARTAN
     Indication: CARDIAC FAILURE CONGESTIVE
     Dosage: UNK
     Route: 065
     Dates: start: 2018

REACTIONS (4)
  - Dyspnoea [Unknown]
  - COVID-19 [Recovering/Resolving]
  - Memory impairment [Unknown]
  - Head discomfort [Unknown]

NARRATIVE: CASE EVENT DATE: 202102
